FAERS Safety Report 7902720-0 (Version None)
Quarter: 2011Q4

REPORT INFORMATION
  Report Type: 
  Country: None (occurrence: None)
  Receive Date: 20111109
  Receipt Date: 20111102
  Transmission Date: 20120403
  Serious: Yes (Other)
  Sender: FDA-Public Use
  Company Number: KR-BRISTOL-MYERS SQUIBB COMPANY-16211161

PATIENT
  Age: 61 Year
  Sex: Female

DRUGS (3)
  1. PREDNISOLONE [Suspect]
     Indication: MYELOFIBROSIS
  2. HYDROXYUREA [Suspect]
     Indication: ESSENTIAL THROMBOCYTHAEMIA
  3. THALIDOMIDE [Suspect]
     Indication: MYELOFIBROSIS

REACTIONS (2)
  - ANGIOCENTRIC LYMPHOMA [None]
  - MYELOFIBROSIS [None]
